FAERS Safety Report 8396219-8 (Version None)
Quarter: 2012Q2

REPORT INFORMATION
  Report Type: 
  Country: None (occurrence: None)
  Receive Date: 20120530
  Receipt Date: 20120525
  Transmission Date: 20120825
  Serious: Yes (Hospitalization)
  Sender: FDA-Public Use
  Company Number: NL-GLAXOSMITHKLINE-B0804660A

PATIENT
  Sex: Female
  Weight: 75 kg

DRUGS (6)
  1. LAMICTAL [Suspect]
     Indication: EPILEPSY
     Route: 048
     Dates: start: 19750301
  2. TEGRETOL-XR [Suspect]
     Indication: EPILEPSY
     Route: 048
     Dates: start: 19750301
  3. DIAZEPAM [Concomitant]
     Indication: EPILEPSY
     Route: 054
  4. DEPAKENE [Suspect]
     Indication: EPILEPSY
     Route: 048
     Dates: start: 19750301
  5. TRANSIPEG [Concomitant]
     Route: 048
  6. NAPROXEN [Concomitant]
     Dosage: 250MG THREE TIMES PER DAY
     Route: 048

REACTIONS (3)
  - DISTURBANCE IN ATTENTION [None]
  - AGGRESSION [None]
  - SOMNOLENCE [None]
